FAERS Safety Report 6672662-X (Version None)
Quarter: 2010Q2

REPORT INFORMATION
  Report Type: 
  Country: None (occurrence: None)
  Receive Date: 20100408
  Receipt Date: 20100330
  Transmission Date: 20101027
  Serious: Yes (Hospitalization)
  Sender: FDA-Public Use
  Company Number: US-ROCHE-691151

PATIENT
  Sex: Female
  Weight: 97.1 kg

DRUGS (15)
  1. BEVACIZUMAB [Suspect]
     Indication: OVARIAN CANCER
     Dosage: FORM: GIVEN ON DAYS 1 AND 15 OF A 28 DAY CYCLE, LAST DOSE PRIOR TO SAE WAS GIVEN ON 24 FEBRUARY 2010
     Route: 042
     Dates: start: 20091103
  2. BEVACIZUMAB [Suspect]
     Dosage: CYCLE: 5; DAY:1.
     Route: 042
     Dates: start: 20100316
  3. GEMCITABINE HCL [Suspect]
     Indication: OVARIAN CANCER
     Dosage: LAST DOSE PRIOR TO SAE WAS GIVEN ON 24 FEBRUARY 2010
     Route: 042
     Dates: start: 20091103
  4. GEMCITABINE HCL [Suspect]
     Route: 042
     Dates: start: 20100316
  5. CARBOPLATIN [Suspect]
     Indication: OVARIAN CANCER
     Dosage: DOSE: AUC, LAST DOSE PRIOR TO SAE:24 FEBRUARY 2010
     Route: 042
     Dates: start: 20091103
  6. CARBOPLATIN [Suspect]
     Route: 042
     Dates: start: 20100316
  7. BENICAR [Concomitant]
  8. BENICAR [Concomitant]
     Dosage: DRUG: BENICAR HOT, DOSE: 40 MG/12.5 MG DAILY.
  9. LEVOTHYROXINE SODIUM [Concomitant]
  10. ASPIRIN [Concomitant]
  11. B6 VITAMIN [Concomitant]
  12. I CAPS [Concomitant]
  13. REGLAN [Concomitant]
     Dosage: FREQUENCY: QID PRN
  14. INDOMETHACIN [Concomitant]
     Dosage: DRUG: INDOMETHACON
  15. ZOFRAN [Concomitant]

REACTIONS (5)
  - DEHYDRATION [None]
  - DIZZINESS [None]
  - FATIGUE [None]
  - HYPERKALAEMIA [None]
  - NAUSEA [None]
